FAERS Safety Report 8889107 (Version 1)
Quarter: 2012Q4

REPORT INFORMATION
  Report Type: 
  Country: US (occurrence: US)
  Receive Date: 20121106
  Receipt Date: 20121106
  Transmission Date: 20130627
  Serious: Yes (Other)
  Sender: FDA-Public Use
  Company Number: US-PFIZER INC-2012275602

PATIENT

DRUGS (1)
  1. EFFEXOR XR [Suspect]
     Dosage: 37.5 mg, 1x/day

REACTIONS (3)
  - Coeliac disease [Unknown]
  - Dizziness [Unknown]
  - Diarrhoea [Unknown]
